FAERS Safety Report 9930313 (Version 1)
Quarter: 2014Q1

REPORT INFORMATION
  Report Type: Spontaneous
  Country: US (occurrence: US)
  Receive Date: 20140227
  Receipt Date: 20140227
  Transmission Date: 20141002
  Serious: No
  Sender: FDA-Public Use
  Company Number: US-AMGEN-USASP2013082028

PATIENT
  Age: 82 Year
  Sex: Female

DRUGS (1)
  1. ENBREL [Suspect]
     Indication: RHEUMATOID ARTHRITIS
     Dosage: 500 MG, QMO
     Route: 065
     Dates: start: 20010212

REACTIONS (2)
  - Feeling cold [Not Recovered/Not Resolved]
  - Anaemia [Not Recovered/Not Resolved]
